FAERS Safety Report 5549814-5 (Version None)
Quarter: 2007Q4

REPORT INFORMATION
  Report Type: 
  Country: None (occurrence: None)
  Receive Date: 20071207
  Receipt Date: 20071207
  Transmission Date: 20080405
  Serious: Yes (Disabling)
  Sender: FDA-Public Use
  Company Number: None

PATIENT

DRUGS (3)
  1. VANCOMYCIN [Suspect]
     Dosage: VARIABLE - SEE DESCRIPTION
     Dates: start: 20071017, end: 20071023
  2. VANCOMYCIN [Suspect]
     Dosage: VARIABLE - SEE DESCRIPTION
     Dates: start: 20071106, end: 20071118
  3. VANCOMYCIN [Suspect]

REACTIONS (3)
  - NEPHROPATHY TOXIC [None]
  - PHARMACEUTICAL PRODUCT COMPLAINT [None]
  - RENAL FAILURE ACUTE [None]
